FAERS Safety Report 6200225-9 (Version None)
Quarter: 2009Q2

REPORT INFORMATION
  Report Type: 
  Country: None (occurrence: None)
  Receive Date: 20090522
  Receipt Date: 20090514
  Transmission Date: 20091009
  Serious: Yes (Hospitalization)
  Sender: FDA-Public Use
  Company Number: CH-JNJFOC-20090503002

PATIENT
  Age: 82 Year
  Sex: Male

DRUGS (12)
  1. HALDOL [Suspect]
     Indication: DRUG USE FOR UNKNOWN INDICATION
     Route: 048
  2. HALDOL DECANOAS [Suspect]
     Indication: DRUG USE FOR UNKNOWN INDICATION
     Route: 058
  3. NEURONTIN [Interacting]
     Indication: PAIN
     Route: 048
  4. RIVOTRIL [Interacting]
     Indication: DRUG USE FOR UNKNOWN INDICATION
     Route: 048
  5. INSULIN [Concomitant]
     Route: 065
  6. LIQUEMINE [Concomitant]
     Route: 058
  7. ASPIRIN [Concomitant]
     Route: 048
  8. COVERSUM [Concomitant]
     Route: 048
  9. NEXIUM [Concomitant]
     Route: 048
  10. AKINETON [Concomitant]
     Route: 048
  11. TIAPRIDAL [Concomitant]
     Route: 048
  12. NITRODERM [Concomitant]
     Route: 003

REACTIONS (2)
  - ALTERED STATE OF CONSCIOUSNESS [None]
  - DRUG INTERACTION [None]
